FAERS Safety Report 7078545-8 (Version None)
Quarter: 2010Q4

REPORT INFORMATION
  Report Type: 
  Country: None (occurrence: None)
  Receive Date: 20101101
  Receipt Date: 20101101
  Transmission Date: 20110411
  Serious: Yes (Other)
  Sender: FDA-Public Use
  Company Number: None

PATIENT
  Age: 28 Year
  Sex: Female
  Weight: 53.5244 kg

DRUGS (1)
  1. LEVAQUIN [Suspect]
     Indication: PELVIC INFLAMMATORY DISEASE
     Dates: start: 20101011, end: 20101029

REACTIONS (2)
  - DEAFNESS UNILATERAL [None]
  - TINNITUS [None]
